FAERS Safety Report 18148952 (Version 2)
Quarter: 2021Q1

REPORT INFORMATION
  Report Type: Report from Study
  Country: DE (occurrence: DE)
  Receive Date: 20200813
  Receipt Date: 20210204
  Transmission Date: 20210419
  Serious: Yes (Hospitalization, Other)
  Sender: FDA-Public Use
  Company Number: PHHY2018DE050209

PATIENT
  Age: 75 Year
  Sex: Female
  Weight: 70 kg

DRUGS (18)
  1. EXJADE [Suspect]
     Active Substance: DEFERASIROX
     Indication: IRON OVERLOAD
     Dosage: 360 MG, (10.14 MG/KG BODYWEIGHT/DAY=2 TABLETS A 360MG)
     Route: 065
     Dates: start: 20180627
  2. EXJADE [Suspect]
     Active Substance: DEFERASIROX
     Dosage: 180 MG  (MG/KG BODYWEIGHT/DAY=TABLETSA MG)
     Route: 048
  3. CLEXANE [Concomitant]
     Active Substance: ENOXAPARIN SODIUM
     Indication: APLASTIC ANAEMIA
     Dosage: 1.2 MG, BID (1?1?0)
     Route: 065
     Dates: start: 20180423, end: 20180515
  4. CYCLOSPORIN A [Concomitant]
     Active Substance: CYCLOSPORINE
     Dosage: 200 MG, BID
     Route: 065
     Dates: start: 20180327
  5. PREDNISONE. [Concomitant]
     Active Substance: PREDNISONE
     Indication: APLASTIC ANAEMIA
     Dosage: AS NEEDED (50?5 MG, 1?0?0)
     Route: 065
     Dates: start: 20160527
  6. ELIQUIS [Concomitant]
     Active Substance: APIXABAN
     Indication: PRODUCT USED FOR UNKNOWN INDICATION
     Dosage: 10 MG, (1?0?1)
     Route: 065
     Dates: start: 20180522
  7. PREDNISOLONE. [Concomitant]
     Active Substance: PREDNISOLONE
     Indication: PRODUCT USED FOR UNKNOWN INDICATION
     Dosage: 5 MG, UNK
     Route: 065
  8. BISOPROLOL [Concomitant]
     Active Substance: BISOPROLOL
     Indication: PROPHYLAXIS
     Dosage: 2.5 MG, QD (1?0?0)
     Route: 065
  9. FOSTER [Concomitant]
     Active Substance: BECLOMETHASONE\FORMOTEROL
     Indication: CHRONIC OBSTRUCTIVE PULMONARY DISEASE
     Dosage: 100/6UG BID
     Route: 065
     Dates: start: 20180327, end: 20180806
  10. TOREM [Concomitant]
     Active Substance: TORSEMIDE
     Indication: OEDEMA
     Dosage: UNK
     Route: 065
     Dates: start: 20190510
  11. EXJADE [Suspect]
     Active Substance: DEFERASIROX
     Dosage: 90 MG  (MG/KG BODYWEIGHT/DAY=TABLETSA MG)
     Route: 048
  12. CYCLOSPORIN A [Concomitant]
     Active Substance: CYCLOSPORINE
     Indication: APLASTIC ANAEMIA
     Dosage: 200 MG, UNK
     Route: 065
     Dates: start: 20160627
  13. EXJADE [Suspect]
     Active Substance: DEFERASIROX
     Dosage: 360 MG  (MG/KG BODYWEIGHT/DAY=TABLETSA MG)
     Route: 048
  14. BISOPROLOL [Concomitant]
     Active Substance: BISOPROLOL
     Indication: ATRIAL FIBRILLATION
     Dosage: 7.5 MG, (1?0?1/2)
     Route: 065
     Dates: start: 20170601
  15. PANTOPRAZOLE [Concomitant]
     Active Substance: PANTOPRAZOLE
     Indication: GASTRITIS
     Dosage: 40 MG, QD
     Route: 065
     Dates: start: 20160324
  16. BECLOMETASON [Concomitant]
     Active Substance: BECLOMETHASONE DIPROPIONATE
     Indication: CHRONIC OBSTRUCTIVE PULMONARY DISEASE
     Dosage: UNK, BID (1?0?1)
     Route: 065
     Dates: start: 201803, end: 2018
  17. AMOXI?CLAVULAN [Concomitant]
     Active Substance: AMOXICILLIN\CLAVULANATE POTASSIUM
     Indication: PRODUCT USED FOR UNKNOWN INDICATION
     Dosage: UNK
     Route: 065
     Dates: end: 20190718
  18. EXJADE [Suspect]
     Active Substance: DEFERASIROX
     Indication: APLASTIC ANAEMIA
     Dosage: 360 MG, (5.14 MG/KG)
     Route: 065
     Dates: start: 20180227, end: 20180626

REACTIONS (7)
  - Thrombocytopenia [Not Recovered/Not Resolved]
  - Stomatitis [Recovered/Resolved]
  - Neutropenia [Unknown]
  - Pneumonia influenzal [Recovered/Resolved]
  - Anaemia [Recovering/Resolving]
  - Red blood cell count decreased [Unknown]
  - Leukopenia [Unknown]

NARRATIVE: CASE EVENT DATE: 20180303
